FAERS Safety Report 4541638-0 (Version None)
Quarter: 2004Q4

REPORT INFORMATION
  Report Type: 
  Country: None (occurrence: None)
  Receive Date: 20041230
  Receipt Date: 20041220
  Transmission Date: 20050328
  Serious: Yes (Other)
  Sender: FDA-Public Use
  Company Number: US-ROCHE-389885

PATIENT
  Age: 75 Year
  Sex: Female

DRUGS (4)
  1. XELODA [Suspect]
     Indication: DRUG USE FOR UNKNOWN INDICATION
     Route: 048
     Dates: start: 20040915
  2. COUMADIN [Interacting]
     Dosage: DOSE UNKNOWN
     Route: 048
     Dates: end: 20040915
  3. COUMADIN [Interacting]
     Route: 048
     Dates: start: 20040915
  4. FOLIC ACID [Interacting]
     Indication: DRUG USE FOR UNKNOWN INDICATION
     Route: 048
     Dates: end: 20041206

REACTIONS (4)
  - DEHYDRATION [None]
  - DRUG INTERACTION [None]
  - INTERNATIONAL NORMALISED RATIO INCREASED [None]
  - PALMAR-PLANTAR ERYTHRODYSAESTHESIA SYNDROME [None]
